FAERS Safety Report 9966038 (Version 1)
Quarter: 2014Q1

REPORT INFORMATION
  Report Type: Report from Study
  Country: US (occurrence: US)
  Receive Date: 20140305
  Receipt Date: 20140305
  Transmission Date: 20141002
  Serious: No
  Sender: FDA-Public Use
  Company Number: US-ABBVIE-13P-163-1122166-00

PATIENT
  Age: 64 Year
  Sex: Female
  Weight: 61.74 kg

DRUGS (1)
  1. HUMIRA [Suspect]
     Indication: CROHN^S DISEASE
     Dates: start: 201306

REACTIONS (10)
  - Influenza like illness [Unknown]
  - Pyrexia [Unknown]
  - Pain [Unknown]
  - Arthropod bite [Unknown]
  - Arthropod bite [Unknown]
  - Unevaluable event [Unknown]
  - Pruritus [Unknown]
  - Acne [Unknown]
  - Rash [Unknown]
  - Diarrhoea [Unknown]
